FAERS Safety Report 20382208 (Version 4)
Quarter: 2022Q3

REPORT INFORMATION
  Report Type: Spontaneous
  Country: US (occurrence: US)
  Receive Date: 20220127
  Receipt Date: 20220824
  Transmission Date: 20221027
  Serious: Yes (Other)
  Sender: FDA-Public Use
  Company Number: US-SA-SAC20220124000916

PATIENT
  Age: 31 Year
  Sex: Male

DRUGS (1)
  1. AUBAGIO [Suspect]
     Active Substance: TERIFLUNOMIDE
     Indication: Multiple sclerosis
     Dosage: 14 MG, QD
     Route: 048

REACTIONS (7)
  - Secondary progressive multiple sclerosis [Unknown]
  - Neuralgia [Unknown]
  - Condition aggravated [Unknown]
  - Tremor [Unknown]
  - Dehydration [Unknown]
  - Headache [Unknown]
  - Product dose omission in error [Unknown]
